FAERS Safety Report 7742858-4 (Version None)
Quarter: 2011Q3

REPORT INFORMATION
  Report Type: 
  Country: None (occurrence: None)
  Receive Date: 20110906
  Receipt Date: 20110824
  Transmission Date: 20111222
  Serious: Yes (Other)
  Sender: FDA-Public Use
  Company Number: 2011SP041105

PATIENT
  Sex: Female

DRUGS (5)
  1. VALPROATE SODIUM [Concomitant]
  2. NEUROCIL (LEVOMEPROMAZINE) [Concomitant]
  3. FLUANXOL DEPOT [Concomitant]
  4. SYCREST (ASENAPINE /05706901/) [Suspect]
     Indication: PRODUCT USED FOR UNKNOWN INDICATION
  5. LORAZEPAM [Concomitant]

REACTIONS (1)
  - AGGRESSION [None]
